FAERS Safety Report 12630058 (Version 2)
Quarter: 2016Q3

REPORT INFORMATION
  Report Type: Spontaneous
  Country: JP (occurrence: JP)
  Receive Date: 20160808
  Receipt Date: 20160818
  Transmission Date: 20161109
  Serious: Yes (Death)
  Sender: FDA-Public Use
  Company Number: JP-AMGEN-JPNSP2016102137

PATIENT
  Age: 57 Year
  Sex: Male

DRUGS (6)
  1. REGPARA [Suspect]
     Active Substance: CINACALCET HYDROCHLORIDE
     Indication: ELECTROLYTE IMBALANCE
     Dosage: 50 MG, UNK
     Route: 048
  2. POVIDONE-IODINE. [Concomitant]
     Active Substance: POVIDONE-IODINE
     Dosage: UNK
     Route: 061
  3. SODIUM THIOSULFATE [Suspect]
     Active Substance: SODIUM THIOSULFATE
     Indication: SKIN ULCER
     Dosage: 25 G, 3 TIMES/WK
     Route: 065
  4. LANTHANUM CARBONATE. [Suspect]
     Active Substance: LANTHANUM CARBONATE
     Indication: PRODUCT USED FOR UNKNOWN INDICATION
     Dosage: 2250 MG, UNK
     Route: 048
  5. ALENDRONATE SODIUM HYDRATE [Suspect]
     Active Substance: ALENDRONATE SODIUM
     Indication: PRODUCT USED FOR UNKNOWN INDICATION
     Dosage: UNK
     Route: 041
  6. PREDONINE [Concomitant]
     Active Substance: PREDNISOLONE\PREDNISOLONE ACETATE\PREDNISOLONE SODIUM SUCCINATE
     Indication: INFLAMMATION
     Dosage: 20 MG, UNK
     Route: 065

REACTIONS (4)
  - Cholecystitis [Fatal]
  - Septic shock [Fatal]
  - Hepatic failure [Fatal]
  - Cholelithiasis [Fatal]
